FAERS Safety Report 7467209-4 (Version None)
Quarter: 2011Q2

REPORT INFORMATION
  Report Type: 
  Country: None (occurrence: None)
  Receive Date: 20110509
  Receipt Date: 20110428
  Transmission Date: 20111010
  Serious: Yes (Hospitalization, Other)
  Sender: FDA-Public Use
  Company Number: US-BAYER-201018868NA

PATIENT
  Age: 31 Year
  Sex: Female
  Weight: 68 kg

DRUGS (14)
  1. YAZ [Suspect]
     Indication: CONTRACEPTION
     Route: 048
     Dates: start: 20070401, end: 20090915
  2. AMERGE [Concomitant]
  3. YASMIN [Suspect]
     Route: 048
     Dates: start: 20070401
  4. HYOSCYAMINE [Concomitant]
  5. ANTIBIOTICS [Concomitant]
  6. DARVOCET [Concomitant]
     Indication: PAIN
  7. OSTEO BI-FLEX [Concomitant]
  8. YAZ [Suspect]
     Indication: PREMENSTRUAL SYNDROME
  9. NAPROXEN (ALEVE) [Concomitant]
  10. IMITREX [Concomitant]
  11. LANTUS [Concomitant]
  12. NOVOLOG [Concomitant]
  13. PROPOXYPHENE HYDROCHLORIDE [Concomitant]
  14. INSULINS AND ANALOGUES [Concomitant]

REACTIONS (4)
  - CHOLECYSTITIS [None]
  - ABDOMINAL PAIN UPPER [None]
  - NAUSEA [None]
  - CHOLELITHIASIS [None]
